FAERS Safety Report 11520022 (Version 1)
Quarter: 2015Q3

REPORT INFORMATION
  Report Type: Spontaneous
  Country: US (occurrence: None)
  Receive Date: 20150917
  Receipt Date: 20150917
  Transmission Date: 20151125
  Serious: Yes (Other)
  Sender: FDA-Public Use
  Company Number: None

PATIENT
  Age: 45 Year
  Sex: Male

DRUGS (1)
  1. STELARA [Suspect]
     Active Substance: USTEKINUMAB
     Indication: PSORIASIS
     Dosage: WEEK 0, 4 THEN ONCE EVERY 12 WEEKS
     Route: 058
     Dates: start: 20150609, end: 20150915

REACTIONS (2)
  - Product substitution issue [None]
  - No therapeutic response [None]

NARRATIVE: CASE EVENT DATE: 201509
